FAERS Safety Report 20606153 (Version 4)
Quarter: 2022Q2

REPORT INFORMATION
  Report Type: Spontaneous
  Country: US (occurrence: US)
  Receive Date: 20220317
  Receipt Date: 20220607
  Transmission Date: 20220720
  Serious: Yes (Other)
  Sender: FDA-Public Use
  Company Number: US-SANOFI-01014992

PATIENT
  Age: 79 Year
  Sex: Male

DRUGS (6)
  1. TOUJEO [Suspect]
     Active Substance: INSULIN GLARGINE
     Indication: Type 2 diabetes mellitus
     Dosage: 60 IU
     Dates: start: 20220222
  2. TOUJEO [Suspect]
     Active Substance: INSULIN GLARGINE
     Dosage: 75 IU
  3. TOUJEO [Suspect]
     Active Substance: INSULIN GLARGINE
     Dosage: 80 IU
     Dates: start: 20220224
  4. NOVOLIN N [Suspect]
     Active Substance: INSULIN HUMAN
  5. NOVOLIN N [Suspect]
     Active Substance: INSULIN HUMAN
     Dosage: 40-50 UNITS
  6. HUMALOG [Concomitant]
     Active Substance: INSULIN LISPRO

REACTIONS (4)
  - Hallucination, visual [Unknown]
  - Blood glucose increased [Unknown]
  - Incorrect product administration duration [Unknown]
  - Drug ineffective [Unknown]

NARRATIVE: CASE EVENT DATE: 20220222
